FAERS Safety Report 10755234 (Version 1)
Quarter: 2015Q1

REPORT INFORMATION
  Report Type: Spontaneous
  Country: CA (occurrence: CA)
  Receive Date: 20150202
  Receipt Date: 20150202
  Transmission Date: 20150721
  Serious: Yes (Other)
  Sender: FDA-Public Use
  Company Number: CA-PFIZER INC-2015036956

PATIENT
  Age: 33 Year
  Sex: Female

DRUGS (1)
  1. CHAMPIX [Suspect]
     Active Substance: VARENICLINE TARTRATE
     Dosage: UNK
     Dates: start: 201411, end: 20150119

REACTIONS (6)
  - Hallucinations, mixed [Recovering/Resolving]
  - Head injury [Recovering/Resolving]
  - Psychotic disorder [Recovering/Resolving]
  - Fear [Recovering/Resolving]
  - Depression [Recovering/Resolving]
  - Thinking abnormal [Recovering/Resolving]

NARRATIVE: CASE EVENT DATE: 2014
